FAERS Safety Report 5025678-3 (Version None)
Quarter: 2006Q2

REPORT INFORMATION
  Report Type: 
  Country: None (occurrence: None)
  Receive Date: 20060614
  Receipt Date: 20060612
  Transmission Date: 20061013
  Serious: Yes (Hospitalization)
  Sender: FDA-Public Use
  Company Number: US-JNJFOC-20060504520

PATIENT
  Age: 56 Year
  Sex: Female

DRUGS (4)
  1. LEVAQUIN [Suspect]
     Indication: STAPHYLOCOCCAL INFECTION
     Route: 048
  2. LEVAQUIN [Suspect]
     Indication: BREAST CELLULITIS
     Route: 048
  3. NEURONTIN [Concomitant]
     Indication: NEURALGIA
  4. EFFEXOR [Concomitant]
     Indication: ANXIETY

REACTIONS (4)
  - DYSPHASIA [None]
  - DYSPHEMIA [None]
  - PARAESTHESIA [None]
  - TREMOR [None]
